FAERS Safety Report 25928916 (Version 3)
Quarter: 2025Q4

REPORT INFORMATION
  Report Type: Spontaneous
  Country: JP (occurrence: JP)
  Receive Date: 20251016
  Receipt Date: 20251218
  Transmission Date: 20260118
  Serious: Yes (Hospitalization, Other)
  Sender: ASTELLAS
  Company Number: JP-ASTELLAS-2025-AER-056840

PATIENT
  Age: 6 Decade
  Sex: Female

DRUGS (3)
  1. XOSPATA [Suspect]
     Active Substance: GILTERITINIB
     Indication: Acute myeloid leukaemia
     Route: 048
  2. XOSPATA [Suspect]
     Active Substance: GILTERITINIB
     Route: 048
  3. REMESTEMCEL-L [Concomitant]
     Active Substance: REMESTEMCEL-L
     Indication: Acute graft versus host disease
     Route: 065

REACTIONS (2)
  - Adenoviral haemorrhagic cystitis [Recovered/Resolved]
  - Graft versus host disease in gastrointestinal tract [Recovered/Resolved]
